FAERS Safety Report 6554677-5 (Version None)
Quarter: 2010Q1

REPORT INFORMATION
  Report Type: 
  Country: None (occurrence: None)
  Receive Date: 20100127
  Receipt Date: 20100115
  Transmission Date: 20100710
  Serious: No
  Sender: FDA-Public Use
  Company Number: US-B.I. PHARMACEUTICALS,INC./RIDGEFIELD-2010-BP-00461YA

PATIENT
  Sex: Male

DRUGS (4)
  1. FLOMAX [Suspect]
     Indication: PROSTATOMEGALY
     Route: 048
     Dates: start: 20091221
  2. FLOMAX [Suspect]
     Dosage: 0.4 MG
     Route: 048
     Dates: start: 20090101, end: 20090301
  3. VESICARE [Suspect]
     Indication: POLLAKIURIA
     Dosage: 5 MG
     Route: 048
     Dates: start: 20091221, end: 20091223
  4. VESICARE [Suspect]
     Dosage: 5 MG
     Route: 048
     Dates: start: 20090101, end: 20090301

REACTIONS (5)
  - AGGRESSION [None]
  - ANGER [None]
  - ILLOGICAL THINKING [None]
  - MOOD SWINGS [None]
  - PALPITATIONS [None]
